FAERS Safety Report 6194463-1 (Version None)
Quarter: 2009Q2

REPORT INFORMATION
  Report Type: 
  Country: None (occurrence: None)
  Receive Date: 20090519
  Receipt Date: 20090508
  Transmission Date: 20091009
  Serious: Yes (Other)
  Sender: FDA-Public Use
  Company Number: PHHY2008GB14216

PATIENT
  Sex: Male

DRUGS (7)
  1. CLOZARIL [Suspect]
     Indication: SCHIZOPHRENIA
     Dosage: UNK
     Route: 048
     Dates: start: 20060207
  2. CLOZARIL [Suspect]
     Dosage: UNK
     Route: 048
     Dates: start: 20080710
  3. CLOZARIL [Suspect]
     Dosage: 850 MG, DAILY
     Route: 048
  4. CLOZARIL [Suspect]
     Dosage: 800 MG DAILY
     Route: 048
  5. CLOZARIL [Suspect]
     Dosage: 750 MG DAILY
     Route: 048
  6. AMISULPRIDE [Concomitant]
     Indication: SCHIZOPHRENIA
     Dosage: 100 MG, DAILY
     Route: 048
  7. OMEPRAZOLE [Concomitant]
     Indication: GASTROOESOPHAGEAL REFLUX DISEASE
     Dosage: 20 MG, DAILY
     Route: 048

REACTIONS (8)
  - ANTIPSYCHOTIC DRUG LEVEL INCREASED [None]
  - BLOOD ALKALINE PHOSPHATASE INCREASED [None]
  - GENERAL PHYSICAL HEALTH DETERIORATION [None]
  - HEART RATE INCREASED [None]
  - MALAISE [None]
  - PYREXIA [None]
  - VIRAL INFECTION [None]
  - VOMITING [None]
